FAERS Safety Report 9690382 (Version 1)
Quarter: 2013Q4

REPORT INFORMATION
  Report Type: Spontaneous
  Country: DE (occurrence: DE)
  Receive Date: 20131115
  Receipt Date: 20131115
  Transmission Date: 20140711
  Serious: Yes (Hospitalization)
  Sender: FDA-Public Use
  Company Number: DE-JNJFOC-20131102485

PATIENT
  Age: 78 Year
  Sex: Female

DRUGS (9)
  1. RISPERDAL [Suspect]
     Indication: PRODUCT USED FOR UNKNOWN INDICATION
     Route: 048
     Dates: start: 20130715, end: 20130717
  2. RISPERDAL [Suspect]
     Indication: PRODUCT USED FOR UNKNOWN INDICATION
     Route: 048
     Dates: start: 20130718, end: 20130718
  3. PANTOPRAZOL [Suspect]
     Indication: PRODUCT USED FOR UNKNOWN INDICATION
     Route: 048
  4. VALSARTAN [Suspect]
     Indication: PRODUCT USED FOR UNKNOWN INDICATION
     Route: 048
     Dates: start: 201306
  5. METHIZOL [Concomitant]
     Route: 048
  6. DIGIMERCK [Concomitant]
     Route: 048
     Dates: start: 2013
  7. AZATHIOPRIN [Concomitant]
     Route: 048
  8. ARCOXIA [Concomitant]
     Route: 048
  9. XARELTO [Concomitant]
     Route: 048
     Dates: start: 201305

REACTIONS (4)
  - Hyponatraemia [Recovering/Resolving]
  - Delirium [Unknown]
  - Haematemesis [Unknown]
  - Nausea [Unknown]
